FAERS Safety Report 8033036-2 (Version None)
Quarter: 2012Q1

REPORT INFORMATION
  Report Type: 
  Country: None (occurrence: None)
  Receive Date: 20120110
  Receipt Date: 20120104
  Transmission Date: 20120608
  Serious: Yes (Life-Threatening, Hospitalization)
  Sender: FDA-Public Use
  Company Number: FR-CELGENEUS-056-C5013-11122141

PATIENT
  Sex: Male
  Weight: 83 kg

DRUGS (13)
  1. SINTROM [Concomitant]
     Indication: ATRIAL FIBRILLATION
     Route: 065
  2. OMEXEL [Concomitant]
     Route: 065
  3. DOCETAXEL [Suspect]
     Indication: PROSTATE CANCER
     Dosage: 75
     Route: 065
     Dates: start: 20110802
  4. PREDNISONE TAB [Suspect]
     Indication: PROSTATE CANCER
     Dosage: 5
     Route: 065
     Dates: start: 20110802, end: 20111202
  5. DIGOXIN [Concomitant]
     Route: 065
  6. HEPARIN [Concomitant]
     Indication: ATRIAL FIBRILLATION
     Route: 065
     Dates: end: 20111208
  7. DOCETAXEL [Suspect]
     Route: 065
     Dates: start: 20111125, end: 20111214
  8. ACTONEL [Concomitant]
     Route: 065
  9. LENALIDOMIDE [Suspect]
     Indication: PROSTATE CANCER
     Route: 048
     Dates: start: 20110802, end: 20111118
  10. ACETAMINOPHEN [Concomitant]
     Dosage: 500 MILLIGRAM
     Route: 065
  11. FUROSEMIDE [Concomitant]
     Route: 065
  12. BISOPROLOL FUMARATE [Concomitant]
     Dosage: 10 MILLIGRAM
     Route: 065
  13. ALLOPURINOL [Concomitant]
     Route: 065

REACTIONS (4)
  - HYPOTENSION [None]
  - DEHYDRATION [None]
  - FEBRILE NEUTROPENIA [None]
  - DIARRHOEA [None]
